FAERS Safety Report 22621373 (Version 1)
Quarter: 2023Q2

REPORT INFORMATION
  Report Type: Report from Study
  Country: US (occurrence: US)
  Receive Date: 20230620
  Receipt Date: 20230620
  Transmission Date: 20230721
  Serious: Yes (Hospitalization, Other)
  Sender: FDA-Public Use
  Company Number: US-BAYER-2023A082290

PATIENT
  Age: 66 Year
  Sex: Male

DRUGS (6)
  1. ASPIRIN [Interacting]
     Active Substance: ASPIRIN
     Indication: Antiplatelet therapy
     Dosage: 150 MG, AT THE END OF THE SURGERY
  2. ASPIRIN [Interacting]
     Active Substance: ASPIRIN
     Indication: Antiplatelet therapy
     Dosage: 81 UNK, STARTING ON POSTOPERATIVE DAY 1
  3. RUXOLITINIB [Suspect]
     Active Substance: RUXOLITINIB
     Indication: Polycythaemia vera
     Dosage: CHRONIC
  4. ENOXAPARIN [Interacting]
     Active Substance: ENOXAPARIN
     Indication: Thrombocytopenia
     Dosage: 30 MG, BID
     Route: 058
  5. CEFAZOLIN [Concomitant]
     Active Substance: CEFAZOLIN
     Dosage: PERIOPERATIVE FOR 24 H
  6. METRONIDAZOLE [Concomitant]
     Active Substance: METRONIDAZOLE
     Dosage: UNK, PERIOPERATIVE FOR 24 H

REACTIONS (5)
  - Thrombocytopenia [None]
  - Procedural haemorrhage [None]
  - Blood loss anaemia [None]
  - Haematoma [None]
  - Labelled drug-drug interaction issue [None]
